FAERS Safety Report 17281787 (Version 11)
Quarter: 2021Q2

REPORT INFORMATION
  Report Type: Report from Study
  Country: AU (occurrence: AU)
  Receive Date: 20200117
  Receipt Date: 20210421
  Transmission Date: 20210716
  Serious: Yes (Hospitalization)
  Sender: FDA-Public Use
  Company Number: AU-IPSEN BIOPHARMACEUTICALS, INC.-2019-15352

PATIENT
  Age: 62 Year
  Sex: Female

DRUGS (13)
  1. HALOPERI [Concomitant]
     Dosage: 500 MCG (TWO THREE TIMES A DAY)
  2. SPIRACTIN [Concomitant]
     Dosage: 25 MGM ( HALF IN THE MORNING)
  3. PC SENNA LAXATIVE [Concomitant]
  4. JURNISTA [Concomitant]
     Active Substance: HYDROMORPHONE HYDROCHLORIDE
     Dosage: (ONE AT NIGHT)
  5. INSULIN [Concomitant]
     Active Substance: INSULIN NOS
     Indication: DIABETES MELLITUS
  6. FRUSEMIDE [Concomitant]
     Active Substance: FUROSEMIDE
     Dosage: 20 MGM
  7. SOMATULINE AUTOGEL [Suspect]
     Active Substance: LANREOTIDE ACETATE
     Indication: GASTROENTEROPANCREATIC NEUROENDOCRINE TUMOUR DISEASE
     Route: 058
     Dates: start: 20141201
  8. JURNISTA [Concomitant]
     Active Substance: HYDROMORPHONE HYDROCHLORIDE
     Dosage: 8 MG (ONE AT NIGHT AS DIRECTED)
  9. CORTISONE [Suspect]
     Active Substance: CORTISONE
     Indication: NEOPLASM MALIGNANT
     Dosage: DOSE NOT REPORTED
     Route: 048
  10. DEXMETHS [Concomitant]
     Dosage: TWO IN THE MORNING
  11. IRBESARTAN. [Concomitant]
     Active Substance: IRBESARTAN
     Dosage: (HALF A IN THE MORNING)
  12. MIRTAZAPINE. [Concomitant]
     Active Substance: MIRTAZAPINE
     Dosage: 15 M (ONE AT NIGHT)
  13. SOMATULINE AUTOGEL [Suspect]
     Active Substance: LANREOTIDE ACETATE
     Indication: CARCINOID TUMOUR

REACTIONS (14)
  - Contusion [Not Recovered/Not Resolved]
  - Product dose omission issue [Unknown]
  - Pelvic fracture [Recovered/Resolved]
  - Hypoglycaemia [Recovered/Resolved]
  - Dizziness [Unknown]
  - Diabetes mellitus inadequate control [Unknown]
  - Blood glucose decreased [Recovering/Resolving]
  - Diarrhoea [Recovered/Resolved]
  - Impaired healing [Recovering/Resolving]
  - Skin laceration [Recovering/Resolving]
  - Fall [Recovered/Resolved]
  - Alopecia [Not Recovered/Not Resolved]
  - Skin abrasion [Recovering/Resolving]
  - Restlessness [Recovering/Resolving]

NARRATIVE: CASE EVENT DATE: 201908
